FAERS Safety Report 17812959 (Version 1)
Quarter: 2020Q2

REPORT INFORMATION
  Report Type: Spontaneous
  Country: FR (occurrence: FR)
  Receive Date: 20200521
  Receipt Date: 20200521
  Transmission Date: 20200714
  Serious: Yes (Other)
  Sender: FDA-Public Use
  Company Number: FR-MYLANLABS-2020M1050596

PATIENT
  Age: 60 Year
  Sex: Male

DRUGS (4)
  1. TACROLIMUS. [Suspect]
     Active Substance: TACROLIMUS
     Indication: VITILIGO
     Dosage: UNK, BID
     Route: 061
  2. HYDROQUINONE. [Suspect]
     Active Substance: HYDROQUINONE
     Indication: SKIN HYPERPIGMENTATION
     Dosage: COMPOUNDED PREPARATION,
     Route: 061
  3. RETINOIC ACID [Suspect]
     Active Substance: TRETINOIN
     Indication: SKIN HYPERPIGMENTATION
     Dosage: COMPOUNDED PREPARATION
     Route: 061
  4. HYDROCORTISONE. [Suspect]
     Active Substance: HYDROCORTISONE
     Indication: SKIN HYPERPIGMENTATION
     Dosage: COMPOUNDED PREPARATION
     Route: 061

REACTIONS (3)
  - Impaired quality of life [Recovered/Resolved]
  - Skin hyperpigmentation [Recovered/Resolved]
  - Drug ineffective [Unknown]
